FAERS Safety Report 10931204 (Version 1)
Quarter: 2015Q1

REPORT INFORMATION
  Report Type: Report from Study
  Country: TN (occurrence: TN)
  Receive Date: 20150319
  Receipt Date: 20150319
  Transmission Date: 20150721
  Serious: Yes (Other)
  Sender: FDA-Public Use
  Company Number: TN-PFIZER INC-2015095584

PATIENT
  Age: 20 Year
  Sex: Male

DRUGS (3)
  1. TACROLIMUS. [Suspect]
     Active Substance: TACROLIMUS
     Dosage: 3 MG, DAILY
  2. MYCOPHENOLATE MOFETIL. [Suspect]
     Active Substance: MYCOPHENOLATE MOFETIL
     Dosage: 2 DF, DAILY
  3. PREDNISONE. [Suspect]
     Active Substance: PREDNISONE
     Dosage: 2 DF, DAILY

REACTIONS (2)
  - Fungal infection [Recovering/Resolving]
  - Meningitis cryptococcal [Recovering/Resolving]
